FAERS Safety Report 5845365-9 (Version None)
Quarter: 2008Q3

REPORT INFORMATION
  Report Type: 
  Country: None (occurrence: None)
  Receive Date: 20080814
  Receipt Date: 20080804
  Transmission Date: 20090109
  Serious: Yes (Other)
  Sender: FDA-Public Use
  Company Number: US-ROCHE-567797

PATIENT
  Sex: Female
  Weight: 79.8 kg

DRUGS (7)
  1. PEG-INTERFERON A-2A (RO 25-8310) [Suspect]
     Indication: HEPATITIS C
     Dosage: FORMULATION: PREFILLED SYRINGE
     Route: 058
     Dates: start: 20071111
  2. RIBAVIRIN [Suspect]
     Indication: HEPATITIS C
     Dosage: DOSE: DIVIDED DOSE
     Route: 048
     Dates: start: 20071111
  3. ALBUTEROL [Concomitant]
  4. LYRICA [Concomitant]
  5. GLYBURIDE [Concomitant]
  6. METFORMIN HCL [Concomitant]
  7. CEPHALEXIN [Concomitant]

REACTIONS (1)
  - AMMONIA INCREASED [None]
